FAERS Safety Report 5129225-7 (Version None)
Quarter: 2006Q4

REPORT INFORMATION
  Report Type: 
  Country: None (occurrence: None)
  Receive Date: 20061012
  Receipt Date: 20061006
  Transmission Date: 20070319
  Serious: Yes (Death)
  Sender: FDA-Public Use
  Company Number: 2006P1000337

PATIENT
  Age: 78 Year
  Sex: Female
  Weight: 75 kg

DRUGS (8)
  1. RETEPLASE (RETEPLASE) [Suspect]
     Indication: ACUTE MYOCARDIAL INFARCTION
     Dosage: IV
     Route: 042
     Dates: start: 20060601, end: 20060601
  2. ABCIXIMAB (ABCIXIMAB) [Suspect]
     Indication: ACUTE MYOCARDIAL INFARCTION
     Dosage: IV
     Route: 042
     Dates: start: 20060601
  3. ASPIRIN [Concomitant]
  4. METOCLOPRAMIDE [Concomitant]
  5. MORPHINE [Concomitant]
  6. OMEPRAZOLE [Concomitant]
  7. HEPARIN [Concomitant]
  8. GLYCERYL TRINITRATE [Concomitant]

REACTIONS (16)
  - AORTIC ARTERIOSCLEROSIS [None]
  - ARTERIAL DISORDER [None]
  - ARTERIOSCLEROSIS CORONARY ARTERY [None]
  - BRONCHITIS CHRONIC [None]
  - CARDIAC ARREST [None]
  - CARDIAC TAMPONADE [None]
  - CHRONIC OBSTRUCTIVE PULMONARY DISEASE [None]
  - CORONARY ARTERY THROMBOSIS [None]
  - EMPHYSEMA [None]
  - KIDNEY FIBROSIS [None]
  - LIVER DISORDER [None]
  - MYELOFIBROSIS [None]
  - MYOCARDIAL RUPTURE [None]
  - PULMONARY FIBROSIS [None]
  - RENAL DISORDER [None]
  - UTERINE LEIOMYOMA [None]
